FAERS Safety Report 6667773-9 (Version None)
Quarter: 2010Q2

REPORT INFORMATION
  Report Type: 
  Country: None (occurrence: None)
  Receive Date: 20100405
  Receipt Date: 20100325
  Transmission Date: 20101027
  Serious: Yes (Other)
  Sender: FDA-Public Use
  Company Number: US-JNJFOC-20100102427

PATIENT
  Sex: Female

DRUGS (2)
  1. TYLENOL [Suspect]
     Indication: ARTHRALGIA
  2. TYLENOL [Suspect]
     Indication: ARTHRITIS

REACTIONS (2)
  - PANCREATIC DISORDER [None]
  - PRODUCT QUALITY ISSUE [None]
